FAERS Safety Report 18410765 (Version 2)
Quarter: 2022Q2

REPORT INFORMATION
  Report Type: Spontaneous
  Country: US (occurrence: US)
  Receive Date: 20201021
  Receipt Date: 20220422
  Transmission Date: 20220721
  Serious: Yes (Other)
  Sender: FDA-Public Use
  Company Number: US-TEVA-2020-US-1840687

PATIENT
  Sex: Male

DRUGS (13)
  1. BUPRENORPHINE [Suspect]
     Active Substance: BUPRENORPHINE
     Route: 062
  2. OXYCODONE AND ACETAMINOPHEN [Suspect]
     Active Substance: ACETAMINOPHEN\OXYCODONE HYDROCHLORIDE
     Route: 065
  3. MORPHINE SULFATE [Suspect]
     Active Substance: MORPHINE SULFATE
     Dosage: EXTENDED RELEASE TABLETS
     Route: 065
  4. TRAMADOL [Suspect]
     Active Substance: TRAMADOL
     Route: 065
  5. VICODIN [Suspect]
     Active Substance: ACETAMINOPHEN\HYDROCODONE BITARTRATE
     Route: 065
  6. OXYCONTIN [Suspect]
     Active Substance: OXYCODONE HYDROCHLORIDE
     Route: 065
  7. DILAUDID [Suspect]
     Active Substance: HYDROMORPHONE HYDROCHLORIDE
     Route: 065
  8. MS CONTIN [Suspect]
     Active Substance: MORPHINE SULFATE
     Route: 065
  9. BUTRANS [Suspect]
     Active Substance: BUPRENORPHINE
     Route: 065
  10. OXYCODONE HYDROCHLORIDE [Suspect]
     Active Substance: OXYCODONE HYDROCHLORIDE
     Route: 065
  11. RYZOLT [Suspect]
     Active Substance: TRAMADOL HYDROCHLORIDE
     Route: 065
  12. HYDROMORPHONE [Suspect]
     Active Substance: HYDROMORPHONE
     Dosage: HYDROMORPHONE IMMEDIATE-RELEASE TABLETS
     Route: 065
  13. OXYCODONE [Suspect]
     Active Substance: OXYCODONE
     Dosage: OXYCODONE EXTENDED-RELEASE TABLETS
     Route: 065

REACTIONS (3)
  - Dependence [Unknown]
  - Substance use disorder [Unknown]
  - Loss of employment [Unknown]
